FAERS Safety Report 4934108-9 (Version None)
Quarter: 2006Q1

REPORT INFORMATION
  Report Type: 
  Country: None (occurrence: None)
  Receive Date: 20060307
  Receipt Date: 20060301
  Transmission Date: 20060701
  Serious: Yes (Hospitalization)
  Sender: FDA-Public Use
  Company Number: DE-AVENTIS-200610594DE

PATIENT
  Age: 56 Year
  Sex: Female

DRUGS (5)
  1. TAXOTERE [Suspect]
     Indication: BREAST CANCER
     Route: 041
     Dates: start: 20050908, end: 20050908
  2. CYCLOPHOSPHAMIDE [Suspect]
     Indication: BREAST CANCER
     Route: 042
     Dates: start: 20050908, end: 20050908
  3. ADRIAMYCIN PFS [Suspect]
     Indication: BREAST CANCER
     Route: 042
     Dates: start: 20050908, end: 20050908
  4. CORTICOSTEROIDS [Concomitant]
  5. ANTIEMETICS AND ANTINAUSEANTS [Concomitant]

REACTIONS (9)
  - CHILLS [None]
  - DIARRHOEA [None]
  - DYSPHAGIA [None]
  - FEBRILE NEUTROPENIA [None]
  - MUCOSAL INFLAMMATION [None]
  - PANCYTOPENIA [None]
  - SEPSIS [None]
  - THROMBOCYTOPENIA [None]
  - VOMITING [None]
